FAERS Safety Report 7485077-1 (Version None)
Quarter: 2011Q2

REPORT INFORMATION
  Report Type: 
  Country: None (occurrence: None)
  Receive Date: 20110517
  Receipt Date: 20101111
  Transmission Date: 20111010
  Serious: No
  Sender: FDA-Public Use
  Company Number: US-BAYER-2010-003940

PATIENT
  Age: 50 Year
  Sex: Male
  Weight: 104.31 kg

DRUGS (1)
  1. ALEVE (CAPLET) [Suspect]
     Indication: HEADACHE
     Dosage: COUNT BOTTLE 100S
     Route: 048
     Dates: start: 20101111

REACTIONS (1)
  - HEADACHE [None]
